FAERS Safety Report 12746661 (Version 5)
Quarter: 2017Q3

REPORT INFORMATION
  Report Type: Report from Study
  Country: JP (occurrence: JP)
  Receive Date: 20160915
  Receipt Date: 20170921
  Transmission Date: 20171127
  Serious: Yes (Hospitalization, Other)
  Sender: FDA-Public Use
  Company Number: JP-DSJP-DSJ-2016-129675

PATIENT

DRUGS (43)
  1. EDOXABAN [Suspect]
     Active Substance: EDOXABAN TOSYLATE
     Dosage: 30 MG, QD
     Route: 048
     Dates: start: 20160315, end: 20161101
  2. CONIEL [Concomitant]
     Active Substance: BENIDIPINE HYDROCHLORIDE
     Dosage: 8MG/DAY
     Route: 048
     Dates: end: 20160704
  3. FENELMIN [Concomitant]
     Dosage: 100MG/DAY
     Route: 048
     Dates: start: 20150821, end: 20160128
  4. RITUXAN [Concomitant]
     Active Substance: RITUXIMAB
     Dosage: 675MG/DAY
     Route: 042
     Dates: start: 20160215, end: 20160215
  5. EDOXABAN [Suspect]
     Active Substance: EDOXABAN TOSYLATE
     Indication: ATRIAL FIBRILLATION
     Dosage: 30 MG, QD
     Route: 048
     Dates: start: 20150825, end: 20160127
  6. RITUXAN [Concomitant]
     Active Substance: RITUXIMAB
     Dosage: 660MG/DAY
     Route: 042
     Dates: start: 20160307, end: 20160307
  7. PREDONINE [Concomitant]
     Active Substance: PREDNISOLONE
     Dosage: 30MG/DAY
     Route: 048
     Dates: start: 20160425, end: 20160429
  8. ONCOVIN [Concomitant]
     Active Substance: VINCRISTINE SULFATE
     Dosage: 1MG/DAY
     Route: 042
     Dates: start: 20160426, end: 20160426
  9. ENDOXAN                            /00021101/ [Concomitant]
     Active Substance: CYCLOPHOSPHAMIDE
     Dosage: 500MG/DAY
     Route: 042
     Dates: start: 20160405, end: 20160405
  10. TIZANIDINE                         /00740702/ [Concomitant]
     Active Substance: TIZANIDINE HYDROCHLORIDE
     Dosage: 3MG/DAY
     Route: 048
     Dates: start: 20151014, end: 20151024
  11. METHYCOBAL [Concomitant]
     Active Substance: METHYLCOBALAMIN
     Dosage: 1.5MG/DAY
     Route: 048
     Dates: start: 20151014, end: 20151024
  12. HICEE                              /00008001/ [Concomitant]
     Dosage: 2 DF/DAY
     Route: 048
     Dates: start: 20150821, end: 20160128
  13. PREDONINE [Concomitant]
     Active Substance: PREDNISOLONE
     Dosage: 30MG/DAY
     Route: 048
     Dates: start: 20160404, end: 20160408
  14. THERARUBICIN                       /00963102/ [Concomitant]
     Dosage: 30G/DAY
     Route: 042
     Dates: start: 20160405, end: 20160405
  15. THERARUBICIN                       /00963102/ [Concomitant]
     Dosage: 30MG/DAY
     Route: 042
     Dates: start: 20160426, end: 20160426
  16. OLMETEC [Concomitant]
     Active Substance: OLMESARTAN MEDOXOMIL
     Dosage: 20MG/DAY
     Route: 048
     Dates: end: 20160704
  17. RITUXAN [Concomitant]
     Active Substance: RITUXIMAB
     Dosage: 660MG/DAY
     Route: 042
     Dates: start: 20160229, end: 20160229
  18. NEUTROGIN [Concomitant]
     Active Substance: LENOGRASTIM
     Dosage: 100UG/DAY
     Route: 042
     Dates: start: 20160421, end: 20160926
  19. HEPARIN [Concomitant]
     Active Substance: HEPARIN SODIUM
     Dosage: 20000IU/DAY
     Route: 042
     Dates: start: 20160310, end: 20160313
  20. EDOXABAN [Suspect]
     Active Substance: EDOXABAN TOSYLATE
     Dosage: 30 MG, QD
     Route: 048
     Dates: start: 20161103, end: 20170119
  21. NEXIUM [Concomitant]
     Active Substance: ESOMEPRAZOLE MAGNESIUM
     Dosage: 20MG/DAY
     Route: 048
     Dates: start: 20150818, end: 20160313
  22. ZYLORIC [Concomitant]
     Active Substance: ALLOPURINOL
     Dosage: 100MG/DAY
     Route: 048
     Dates: end: 20160725
  23. VERAPAMIL HYDROCHLORIDE. [Concomitant]
     Active Substance: VERAPAMIL HYDROCHLORIDE
     Indication: ATRIAL FIBRILLATION
     Dosage: 80MG/DAY
     Route: 048
  24. REBAMIPIDE [Concomitant]
     Active Substance: REBAMIPIDE
     Dosage: 300MG/DAY
     Route: 048
     Dates: start: 20160130
  25. FLUCONAZOLE. [Concomitant]
     Active Substance: FLUCONAZOLE
     Dosage: 100MG/DAY
     Route: 048
     Dates: start: 20160205
  26. RITUXAN [Concomitant]
     Active Substance: RITUXIMAB
     Dosage: 675MG/DAY
     Route: 042
     Dates: start: 20160208, end: 20160208
  27. RITUXAN [Concomitant]
     Active Substance: RITUXIMAB
     Dosage: 660MG/DAY
     Route: 042
     Dates: start: 20160222, end: 20160222
  28. RITUXAN [Concomitant]
     Active Substance: RITUXIMAB
     Dosage: 633MG/DAY
     Route: 042
     Dates: start: 20160425, end: 20160425
  29. EDOXABAN [Suspect]
     Active Substance: EDOXABAN TOSYLATE
     Dosage: 30 MG, QD
     Route: 048
     Dates: start: 20170121, end: 20170331
  30. MAGLAX [Concomitant]
     Active Substance: MAGNESIUM OXIDE
     Dosage: 4 DF/DAY
     Route: 048
  31. DAIPHEN [Concomitant]
     Active Substance: SULFAMETHOXAZOLE\TRIMETHOPRIM
     Dosage: 1 DF, 3 TIMES PER 1WK
     Route: 048
     Dates: start: 20160208, end: 20160226
  32. RITUXAN [Concomitant]
     Active Substance: RITUXIMAB
     Dosage: 650MG/DAY
     Route: 042
     Dates: start: 20160323, end: 20160323
  33. RITUXAN [Concomitant]
     Active Substance: RITUXIMAB
     Dosage: 645MG/DAY
     Route: 048
     Dates: start: 20160404, end: 20160404
  34. FLUITRAN [Concomitant]
     Active Substance: TRICHLORMETHIAZIDE
     Dosage: 0.5MG/DAY
     Route: 048
  35. SIMVASTATIN. [Concomitant]
     Active Substance: SIMVASTATIN
     Dosage: 10MG/DAY
     Route: 048
  36. THEO-DUR [Concomitant]
     Active Substance: THEOPHYLLINE ANHYDROUS
     Dosage: 200G/DAY
     Route: 048
  37. CALONAL [Concomitant]
     Active Substance: ACETAMINOPHEN
     Dosage: 500MG/DAY
     Route: 048
     Dates: start: 20160207, end: 20170730
  38. ONCOVIN [Concomitant]
     Active Substance: VINCRISTINE SULFATE
     Dosage: 1MG/DAY
     Route: 042
     Dates: start: 20160405, end: 20160405
  39. ENDOXAN                            /00021101/ [Concomitant]
     Active Substance: CYCLOPHOSPHAMIDE
     Dosage: 500MG/DAY
     Route: 042
     Dates: start: 20160426, end: 20160426
  40. BETAHISTINE MESILATE [Concomitant]
     Active Substance: BETAHISTINE MESILATE
     Dosage: 18MG/DAY
     Route: 048
     Dates: start: 20151014, end: 20151024
  41. EDOXABAN [Suspect]
     Active Substance: EDOXABAN TOSYLATE
     Dosage: 30 MG, QD
     Route: 048
     Dates: start: 20170408, end: 20170412
  42. EDOXABAN [Suspect]
     Active Substance: EDOXABAN TOSYLATE
     Dosage: 30 MG, QD
     Route: 048
     Dates: start: 20170419
  43. WARFARIN                           /00014803/ [Concomitant]
     Active Substance: WARFARIN
     Dosage: 4.25MG/DAY
     Route: 048
     Dates: end: 20150817

REACTIONS (3)
  - Faeces discoloured [Recovering/Resolving]
  - Peripheral embolism [Recovering/Resolving]
  - Lymphoma [Recovering/Resolving]

NARRATIVE: CASE EVENT DATE: 201601
